FAERS Safety Report 8201896-8 (Version None)
Quarter: 2012Q1

REPORT INFORMATION
  Report Type: 
  Country: None (occurrence: None)
  Receive Date: 20120312
  Receipt Date: 20120302
  Transmission Date: 20120608
  Serious: Yes (Hospitalization, Other)
  Sender: FDA-Public Use
  Company Number: US-BAYER-2011-061381

PATIENT
  Sex: Female
  Weight: 49.887 kg

DRUGS (5)
  1. YASMIN [Suspect]
     Indication: CONTRACEPTION
     Dosage: UNK
     Dates: start: 19890101, end: 20050101
  2. LORTAB [Concomitant]
     Dosage: UNK
     Dates: start: 20010422
  3. ROXICET [Concomitant]
     Dosage: UNK
     Dates: start: 20010430
  4. DROSPIRENONE AND ETHINYL ESTRADIOL [Suspect]
     Indication: CONTRACEPTION
  5. YAZ [Suspect]
     Indication: CONTRACEPTION
     Dosage: UNK
     Dates: start: 19890101, end: 20050101

REACTIONS (4)
  - ARRHYTHMIA [None]
  - PALPITATIONS [None]
  - CHOLECYSTITIS CHRONIC [None]
  - GALLBLADDER INJURY [None]
